FAERS Safety Report 4602657-9 (Version None)
Quarter: 2005Q1

REPORT INFORMATION
  Report Type: 
  Country: None (occurrence: None)
  Receive Date: 20050307
  Receipt Date: 20050224
  Transmission Date: 20050727
  Serious: Yes (Hospitalization)
  Sender: FDA-Public Use
  Company Number: 141267USA

PATIENT
  Age: 59 Year
  Sex: Female

DRUGS (3)
  1. ADENOSINE [Suspect]
     Dosage: 5 MILLIGRAM INTRAVENOUS BOLUS
     Route: 040
     Dates: start: 20050201
  2. ADENOSCAN [Suspect]
     Dosage: 57 MILLIGRAM INTRAVENOUS BOLUS
     Route: 040
     Dates: start: 20050201
  3. OXYCONTIN [Concomitant]

REACTIONS (5)
  - BODY TEMPERATURE INCREASED [None]
  - CORONARY ARTERY SURGERY [None]
  - HAEMOPTYSIS [None]
  - NERVOUS SYSTEM DISORDER [None]
  - PULMONARY OEDEMA [None]
